FAERS Safety Report 7592403-1 (Version None)
Quarter: 2011Q3

REPORT INFORMATION
  Report Type: 
  Country: None (occurrence: None)
  Receive Date: 20110706
  Receipt Date: 20110622
  Transmission Date: 20111222
  Serious: Yes (Hospitalization, Other)
  Sender: FDA-Public Use
  Company Number: JP-SANOFI-AVENTIS-2011SA042392

PATIENT
  Age: 23 Year
  Sex: Male
  Weight: 53 kg

DRUGS (34)
  1. TACROLIMUS [Concomitant]
     Dates: start: 20100211, end: 20100623
  2. ETHYL ICOSAPENTATE [Concomitant]
     Dates: start: 20100205, end: 20100430
  3. PREDNISOLONE [Concomitant]
     Dates: start: 20100225
  4. FLUDARABINE PHOSPHATE [Suspect]
     Indication: BONE MARROW CONDITIONING REGIMEN
     Route: 048
     Dates: start: 20100204, end: 20100208
  5. POLYMYXIN B SULFATE [Concomitant]
     Dates: start: 20100204, end: 20100305
  6. SULFAMETHOPRIM [Concomitant]
     Dates: start: 20100225
  7. PIRARUBICIN HYDROCHLORIDE [Concomitant]
  8. HYDROCORTISONE SODIUM SUCCINATE [Concomitant]
     Dates: start: 20100204, end: 20100212
  9. MICAFUNGIN SODIUM [Concomitant]
     Dates: start: 20100204
  10. FILGRASTIM [Concomitant]
     Dates: start: 20100213, end: 20100226
  11. VANCOMYCIN HYCHLORIDE [Concomitant]
     Dates: start: 20100204, end: 20100305
  12. PLATELETS [Concomitant]
     Dates: start: 20100214, end: 20100808
  13. CARBOPLATIN [Concomitant]
     Dates: start: 20090805, end: 20090926
  14. IMIPEM [Concomitant]
     Dates: start: 20100217, end: 20100222
  15. THYMOGLOBULIN [Suspect]
     Indication: BONE MARROW CONDITIONING REGIMEN
     Route: 065
     Dates: start: 20100210, end: 20100211
  16. ETOPOSIDE [Concomitant]
     Dates: start: 20090803, end: 20090926
  17. FAMOTIDINE [Concomitant]
     Dates: start: 20100204, end: 20100303
  18. DALTEPARIN SODIUM [Concomitant]
     Dates: start: 20100204, end: 20100330
  19. MELPHALAN HYDROCHLORIDE [Concomitant]
     Dates: start: 20100209, end: 20100210
  20. METHYLPREDNISOLONE SODIUM SUCCINATE [Concomitant]
     Dates: start: 20100210, end: 20100211
  21. PREDNISOLONE ACETATE [Concomitant]
     Dates: start: 20100212, end: 20100223
  22. VINCRISTINE SULFATE [Concomitant]
     Dates: start: 20091026, end: 20091121
  23. GLUTATHIONE [Concomitant]
     Dates: start: 20100204, end: 20100401
  24. SULFAMETHOPRIM [Concomitant]
     Dates: start: 20100225
  25. ITRACONAZOL A [Concomitant]
     Dates: start: 20100401
  26. IFOSFAMIDE [Concomitant]
     Dates: start: 20090803, end: 20090926
  27. CEFTRIAXONE [Concomitant]
     Dates: start: 20100226, end: 20100807
  28. FLUCONAL [Concomitant]
     Dates: start: 20100205, end: 20100402
  29. GRANISETRON HCL [Concomitant]
     Dates: start: 20100204, end: 20100314
  30. PIPERACILLIN SODIUM [Concomitant]
     Dates: start: 20100204, end: 20100216
  31. HYDROXYZINE HYDROCHLORIDE [Concomitant]
     Dates: start: 20100210, end: 20100806
  32. METHOTREXATE [Concomitant]
     Dates: start: 20100214, end: 20100218
  33. ZOVIRAX [Concomitant]
     Dates: start: 20100205, end: 20100321
  34. URSODIOL [Concomitant]
     Dates: start: 20100205, end: 20100430

REACTIONS (16)
  - PANCREATITIS [None]
  - CHEST WALL MASS [None]
  - RADIATION PNEUMONITIS [None]
  - ACUTE GRAFT VERSUS HOST DISEASE IN SKIN [None]
  - HEPATIC FUNCTION ABNORMAL [None]
  - FEBRILE NEUTROPENIA [None]
  - INSOMNIA [None]
  - ENCEPHALITIS HERPES [None]
  - ACUTE GRAFT VERSUS HOST DISEASE IN INTESTINE [None]
  - PNEUMONIA [None]
  - HYPONATRAEMIA [None]
  - DECREASED APPETITE [None]
  - DEPRESSION [None]
  - NAUSEA [None]
  - DIARRHOEA [None]
  - MEMORY IMPAIRMENT [None]
